FAERS Safety Report 7156755-9 (Version None)
Quarter: 2010Q4

REPORT INFORMATION
  Report Type: 
  Country: None (occurrence: None)
  Receive Date: 20101214
  Receipt Date: 20091208
  Transmission Date: 20110411
  Serious: No
  Sender: FDA-Public Use
  Company Number: US-ASTRAZENECA-2009SE30790

PATIENT
  Age: 83 Year
  Sex: Female

DRUGS (12)
  1. CRESTOR [Suspect]
     Route: 048
  2. LANTUS [Concomitant]
  3. MAGNESIUM [Concomitant]
  4. VITAMIN B-12 [Concomitant]
  5. CALCIUM [Concomitant]
  6. SPIRALACTONE [Concomitant]
  7. FUROSEMIDE [Concomitant]
  8. RANTIONE [Concomitant]
  9. FEREX [Concomitant]
  10. ASPIRIN [Concomitant]
  11. PLAVIX [Concomitant]
  12. PRILOSEC [Concomitant]

REACTIONS (1)
  - BACK PAIN [None]
